FAERS Safety Report 20747228 (Version 2)
Quarter: 2022Q2

REPORT INFORMATION
  Report Type: Spontaneous
  Country: US (occurrence: US)
  Receive Date: 20220425
  Receipt Date: 20220608
  Transmission Date: 20220721
  Serious: Yes (Other)
  Sender: FDA-Public Use
  Company Number: US-GW PHARMA-2022-US-013090

PATIENT
  Sex: Male
  Weight: 68 kg

DRUGS (8)
  1. EPIDIOLEX [Suspect]
     Active Substance: CANNABIDIOL
     Indication: Product used for unknown indication
     Dosage: 3.5 MILLIGRAM, BID
     Route: 048
  2. FYCOMPA [Concomitant]
     Active Substance: PERAMPANEL
     Dosage: UNK
  3. VITAMIN D NOS [Concomitant]
     Active Substance: VITAMIN D NOS
     Dosage: UNK
  4. DEPAKOTE [Concomitant]
     Active Substance: DIVALPROEX SODIUM
     Dosage: UNK
  5. LAMICTAL [Concomitant]
     Active Substance: LAMOTRIGINE
     Dosage: UNK
  6. DIASTAT ACUDIAL [Concomitant]
     Active Substance: DIAZEPAM
     Dosage: UNK
  7. ATIVAN [Concomitant]
     Active Substance: LORAZEPAM
     Dosage: UNK
  8. ONFI [Concomitant]
     Active Substance: CLOBAZAM
     Dosage: UNK
     Dates: start: 202003

REACTIONS (3)
  - Gait disturbance [Unknown]
  - Gait inability [Unknown]
  - Hypotonia [Unknown]
